FAERS Safety Report 26065423 (Version 1)
Quarter: 2025Q4

REPORT INFORMATION
  Report Type: Spontaneous
  Country: EU (occurrence: EU)
  Receive Date: 20251119
  Receipt Date: 20251119
  Transmission Date: 20260117
  Serious: Yes (Hospitalization)
  Sender: ALEXION PHARMACEUTICALS
  Company Number: None

PATIENT
  Age: 59 Year
  Sex: Female
  Weight: 47 kg

DRUGS (1)
  1. TAGRISSO [Suspect]
     Active Substance: OSIMERTINIB
     Indication: Lung adenocarcinoma
     Dosage: 80 MILLIGRAM, QD
     Dates: start: 2002

REACTIONS (3)
  - Deep vein thrombosis [Recovered/Resolved]
  - Myocardial infarction [Recovered/Resolved]
  - Pulmonary embolism [Recovering/Resolving]

NARRATIVE: CASE EVENT DATE: 20250721
